FAERS Safety Report 12810534 (Version 2)
Quarter: 2017Q1

REPORT INFORMATION
  Report Type: Spontaneous
  Country: US (occurrence: US)
  Receive Date: 20161005
  Receipt Date: 20170202
  Transmission Date: 20170428
  Serious: Yes (Other)
  Sender: FDA-Public Use
  Company Number: US-ASTELLAS-2016US038661

PATIENT
  Age: 59 Year
  Sex: Female

DRUGS (12)
  1. METHYLPREDNISOLONE. [Concomitant]
     Active Substance: METHYLPREDNISOLONE
     Indication: INTESTINAL TRANSPLANT
     Dosage: UNK UNK, UNKNOWN FREQ. (3 BOLUSES ONLY WITH ANTI-THYMOCYTE GLOBULIN INDUCTION)
     Route: 065
  2. MYCOPHENOLATE MOFETIL. [Concomitant]
     Active Substance: MYCOPHENOLATE MOFETIL
     Indication: INTESTINAL TRANSPLANT
     Route: 065
  3. AZATHIOPRINE. [Concomitant]
     Active Substance: AZATHIOPRINE
     Indication: INTESTINAL TRANSPLANT
     Route: 065
  4. ANTITHYMOCYTE IMMUNOGLOBULIN [Concomitant]
     Active Substance: THYMOCYTE IMMUNE GLOBULIN NOS
     Indication: INTESTINAL TRANSPLANT
  5. TACROLIMUS. [Suspect]
     Active Substance: TACROLIMUS
     Indication: INTESTINAL TRANSPLANT
     Dosage: UNK UNK, UNKNOWN FREQ.(12 H TROUGH LEVELS OF 10 NG/ML IN THE FIRST 3 MONTHS AND 8 NG/ML THEREAFTER)
     Route: 065
  6. TACROLIMUS. [Suspect]
     Active Substance: TACROLIMUS
     Indication: RENAL TRANSPLANT
  7. ANTITHYMOCYTE IMMUNOGLOBULIN [Concomitant]
     Active Substance: THYMOCYTE IMMUNE GLOBULIN NOS
     Indication: RENAL TRANSPLANT
     Dosage: 2 MG/KG, ONCE DAILY (3 DOSES)
     Route: 065
  8. AZATHIOPRINE. [Concomitant]
     Active Substance: AZATHIOPRINE
     Indication: RENAL TRANSPLANT
  9. RITUXIMAB [Concomitant]
     Active Substance: RITUXIMAB
     Indication: INTESTINAL TRANSPLANT
     Dosage: 150 MG/M2, UNKNOWN FREQ(1 DOSE)
     Route: 065
  10. RITUXIMAB [Concomitant]
     Active Substance: RITUXIMAB
     Indication: RENAL TRANSPLANT
  11. METHYLPREDNISOLONE. [Concomitant]
     Active Substance: METHYLPREDNISOLONE
     Indication: RENAL TRANSPLANT
  12. MYCOPHENOLATE MOFETIL. [Concomitant]
     Active Substance: MYCOPHENOLATE MOFETIL
     Indication: RENAL TRANSPLANT

REACTIONS (11)
  - Pancreatic insufficiency [Unknown]
  - Nephropathy [Unknown]
  - Diarrhoea [Unknown]
  - Acute kidney injury [Unknown]
  - Urinary tract infection [Unknown]
  - Haematoma [Unknown]
  - Hyperoxaluria [Unknown]
  - Renal impairment [Not Recovered/Not Resolved]
  - Transplant rejection [Unknown]
  - Infection [Unknown]
  - Off label use [Unknown]

NARRATIVE: CASE EVENT DATE: 201209
